FAERS Safety Report 17711173 (Version 2)
Quarter: 2020Q2

REPORT INFORMATION
  Report Type: Report from Study
  Country: MX (occurrence: MX)
  Receive Date: 20200427
  Receipt Date: 20200514
  Transmission Date: 20200714
  Serious: Yes (Other)
  Sender: FDA-Public Use
  Company Number: NVSC2020MX083590

PATIENT
  Age: 74 Year
  Sex: Female
  Weight: 85 kg

DRUGS (5)
  1. EXFORGE [Suspect]
     Active Substance: AMLODIPINE BESYLATE\VALSARTAN
     Dosage: 1 DF (10/160 MG), QD
     Route: 048
     Dates: start: 2015
  2. CLONAZEPAM. [Concomitant]
     Active Substance: CLONAZEPAM
     Indication: SLEEP DISORDER
     Dosage: 5 MG, QD
     Route: 048
  3. MELATONIN [Concomitant]
     Active Substance: MELATONIN
     Indication: PRODUCT USED FOR UNKNOWN INDICATION
     Dosage: 1 DF, QD
     Route: 048
  4. EXFORGE [Suspect]
     Active Substance: AMLODIPINE BESYLATE\VALSARTAN
     Indication: HYPERTENSION
     Dosage: 1 DF (AMLODIPINE 5/ VALSARTAN 160 MG), QD
     Route: 048
     Dates: start: 2012, end: 2015
  5. EXFORGE [Suspect]
     Active Substance: AMLODIPINE BESYLATE\VALSARTAN
     Dosage: 1 DF  (10/160 MG), QD
     Route: 048
     Dates: start: 2015

REACTIONS (12)
  - Malaise [Unknown]
  - Mental disorder [Unknown]
  - Senile dementia [Recovered/Resolved]
  - Blood pressure abnormal [Unknown]
  - Fatigue [Recovered/Resolved]
  - Headache [Recovered/Resolved]
  - Diarrhoea [Recovered/Resolved]
  - Cough [Recovering/Resolving]
  - Drug ineffective [Unknown]
  - Memory impairment [Recovered/Resolved]
  - Gastrooesophageal reflux disease [Unknown]
  - Pain in extremity [Recovered/Resolved]

NARRATIVE: CASE EVENT DATE: 201907
